FAERS Safety Report 24655676 (Version 2)
Quarter: 2025Q1

REPORT INFORMATION
  Report Type: Report from Study
  Country: JP (occurrence: JP)
  Receive Date: 20241123
  Receipt Date: 20250220
  Transmission Date: 20250409
  Serious: Yes (Other)
  Sender: ALEXION PHARMACEUTICALS
  Company Number: JP-ASTRAZENECA-202411GLO016671JP

PATIENT

DRUGS (2)
  1. OSIMERTINIB [Suspect]
     Active Substance: OSIMERTINIB
     Indication: Lung adenocarcinoma
     Dosage: 80 MILLIGRAM, QD
  2. SELPERCATINIB [Concomitant]
     Active Substance: SELPERCATINIB
     Indication: Lung adenocarcinoma stage IV

REACTIONS (4)
  - Acquired gene mutation [Unknown]
  - Metastases to liver [Unknown]
  - Malignant neoplasm progression [Unknown]
  - Drug resistance [Unknown]
